FAERS Safety Report 11088473 (Version 10)
Quarter: 2020Q4

REPORT INFORMATION
  Report Type: Spontaneous
  Country: US (occurrence: US)
  Receive Date: 20150504
  Receipt Date: 20201223
  Transmission Date: 20210113
  Serious: Yes (Other)
  Sender: FDA-Public Use
  Company Number: US-PFIZER INC-2015143124

PATIENT
  Age: 63 Year
  Sex: Female
  Weight: 63 kg

DRUGS (50)
  1. CYMBALTA [Concomitant]
     Active Substance: DULOXETINE HYDROCHLORIDE
     Indication: PAIN
     Dosage: 30 MG, 1X/DAY
  2. FLONASE [Concomitant]
     Active Substance: FLUTICASONE PROPIONATE
     Dosage: 1-2/DAY
     Route: 045
  3. ACYCLOVIR. [Concomitant]
     Active Substance: ACYCLOVIR
     Dosage: 1000 MG, UNK
  4. FORTEO [Concomitant]
     Active Substance: TERIPARATIDE
     Indication: OSTEOPOROSIS
     Dosage: UNK, DAILY SHOT
  5. SALT [Concomitant]
     Active Substance: SODIUM CHLORIDE
     Dosage: UNK
  6. LYRICA [Suspect]
     Active Substance: PREGABALIN
     Indication: BACK DISORDER
     Dosage: 225 MG, DAILY (150MG; TIME: 1X/DAY-PM / 75 MG; TIME: 1X/DAY-AM)
  7. MOBIC [Concomitant]
     Active Substance: MELOXICAM
     Indication: OSTEOARTHRITIS
     Dosage: 7.5 MG, 1X/DAY (AM)
  8. METOPROLOL XL [Concomitant]
     Active Substance: METOPROLOL SUCCINATE
     Indication: CARDIAC DISORDER
     Dosage: 25 MG, 1X/DAY (AM)
  9. PREMARIN [Concomitant]
     Active Substance: ESTROGENS, CONJUGATED
     Indication: VULVOVAGINAL DRYNESS
     Dosage: 1-2 X/WEEK
  10. TYLENOL XL [Concomitant]
     Indication: OSTEOARTHRITIS
     Dosage: 500 MG, AS NEEDED
  11. FISH OIL [Concomitant]
     Active Substance: FISH OIL
     Dosage: 1000 MG, 1X/DAY
  12. VOLTAREN [Concomitant]
     Active Substance: DICLOFENAC SODIUM
     Dosage: UNK
  13. LYRICA [Suspect]
     Active Substance: PREGABALIN
     Indication: STENOSIS
     Dosage: 225 MG, 2X/DAY, 75 MG AT DAY AND 150 MG (2 OF 75 MG) BEFORE SHE WENT TO BED
     Route: 048
  14. LYRICA [Suspect]
     Active Substance: PREGABALIN
     Indication: ROTATOR CUFF SYNDROME
     Dosage: 150 MG, 1X/DAY (AT BEDTIME)
     Route: 048
  15. LYRICA [Suspect]
     Active Substance: PREGABALIN
     Indication: ARTHROSCOPIC SURGERY
  16. LYRICA [Suspect]
     Active Substance: PREGABALIN
     Indication: SPINAL OSTEOARTHRITIS
  17. DULOXETINE. [Concomitant]
     Active Substance: DULOXETINE
     Dosage: 60 MG, UNK
  18. LYRICA [Suspect]
     Active Substance: PREGABALIN
     Indication: SPINAL OSTEOARTHRITIS
     Dosage: 75 MG, 1X/DAY
     Route: 048
  19. IPRATROPIUM BROMIDE. [Concomitant]
     Active Substance: IPRATROPIUM BROMIDE
     Dosage: UNK, AS NEEDED
     Route: 045
  20. ZOVIRAX [Concomitant]
     Active Substance: ACYCLOVIR
     Dosage: 400 MG, 2X/DAY (AM)
  21. NITROGLYCERIN. [Concomitant]
     Active Substance: NITROGLYCERIN
     Indication: CARDIAC DISORDER
     Dosage: UNK, AS NEEDED
  22. BIOTIN [Concomitant]
     Active Substance: BIOTIN
     Dosage: 5000 ?G, 1X/DAY (AM)
  23. VITAMIN D3 [Concomitant]
     Active Substance: CHOLECALCIFEROL
     Dosage: 1000 IU, 1X/DAY (AM)
  24. FISH OIL [Concomitant]
     Active Substance: FISH OIL
     Dosage: 1000 MG, UNK (WHEN NOT HAVING FISH)
  25. MAGNESIUM [Concomitant]
     Active Substance: MAGNESIUM
     Dosage: 250 MG, 1X/DAY (PM)
  26. MELATONIN [Concomitant]
     Active Substance: MELATONIN
     Dosage: 5-6 MG (OCCASIONALLY)
  27. LYRICA [Suspect]
     Active Substance: PREGABALIN
     Indication: INTERVERTEBRAL DISC DEGENERATION
     Dosage: 150 MG, 1X/DAY Q PM (1 8 AM)
     Route: 048
  28. LYRICA [Suspect]
     Active Substance: PREGABALIN
     Indication: ARTHRODESIS
  29. CENTRUM SILVER [Concomitant]
     Active Substance: MINERALS\VITAMINS
     Dosage: UNK, 1X/DAY (MULTIPLE) (PM)
  30. VITAMIN C [Concomitant]
     Active Substance: ASCORBIC ACID
     Dosage: 500 MG, 1X/DAY (AM)
  31. VITAMIN E [Concomitant]
     Active Substance: .ALPHA.-TOCOPHEROL
     Dosage: 400 IU, 1X/DAY
  32. OMEPRAZOLE. [Concomitant]
     Active Substance: OMEPRAZOLE
     Dosage: 40 MG, UNK
  33. MONTELUKAST [Concomitant]
     Active Substance: MONTELUKAST SODIUM
     Dosage: 10 MG, UNK
  34. LYRICA [Suspect]
     Active Substance: PREGABALIN
     Indication: ARTHRALGIA
  35. LYRICA [Suspect]
     Active Substance: PREGABALIN
     Indication: OSTEOARTHRITIS
  36. SINGULAIR [Concomitant]
     Active Substance: MONTELUKAST SODIUM
     Indication: SINUS PAIN
     Dosage: 10 MG, 1X/DAY
  37. VOLTARENE GEL [Concomitant]
     Indication: BONE PAIN
     Dosage: 2 G, 4X/DAY (AS NEEDED)
  38. BABY ASPIRIN [Concomitant]
     Active Substance: ASPIRIN
     Indication: CARDIAC DISORDER
     Dosage: 81 MG, 1X/DAY (PM)
  39. AMBIEN [Concomitant]
     Active Substance: ZOLPIDEM TARTRATE
     Indication: SOMNOLENCE
     Dosage: 5 MG, AS NEEDED
  40. VITAMIN B12 [Concomitant]
     Active Substance: CYANOCOBALAMIN
     Dosage: 1000 UG, AS NEEDED
  41. MELOXICAM A [Concomitant]
     Dosage: 7.5 MG, UNK
  42. METOPROLOL SUCCINATE. [Concomitant]
     Active Substance: METOPROLOL SUCCINATE
     Dosage: 25 MG, UNK
  43. LYRICA [Suspect]
     Active Substance: PREGABALIN
     Indication: NERVE INJURY
     Dosage: 75 MG, 3X/DAY
     Route: 048
  44. PRILOSEC [Concomitant]
     Active Substance: OMEPRAZOLE MAGNESIUM
     Indication: GASTROOESOPHAGEAL REFLUX DISEASE
     Dosage: 40 MG, 2X/DAY
  45. CALCIUM [Concomitant]
     Active Substance: CALCIUM
     Dosage: 600 MG, 1X/DAY (AM)
  46. LYRICA [Suspect]
     Active Substance: PREGABALIN
     Indication: SCOLIOSIS
     Dosage: 150 MG, DAILY (DURING THE DAY)
     Dates: start: 2005
  47. CRESTOR [Concomitant]
     Active Substance: ROSUVASTATIN CALCIUM
     Indication: CARDIAC DISORDER
     Dosage: 5 MG, 1X/DAY (PM)
  48. TRAMADOL. [Concomitant]
     Active Substance: TRAMADOL
     Indication: SPINAL PAIN
     Dosage: 50 MG, AS NEEDED
  49. VITAMIN B12 [Concomitant]
     Active Substance: CYANOCOBALAMIN
     Dosage: 1000 ?G, 1X/DAY
  50. ROSUVASTATIN. [Concomitant]
     Active Substance: ROSUVASTATIN
     Dosage: 5 MG, UNK

REACTIONS (8)
  - Arterial occlusive disease [Unknown]
  - Drug intolerance [Unknown]
  - Somnolence [Unknown]
  - Sinusitis [Unknown]
  - Back pain [Unknown]
  - Myocardial infarction [Unknown]
  - Sinus congestion [Unknown]
  - Pain [Unknown]

NARRATIVE: CASE EVENT DATE: 2013
